FAERS Safety Report 5471159-2 (Version None)
Quarter: 2007Q3

REPORT INFORMATION
  Report Type: 
  Country: None (occurrence: None)
  Receive Date: 20070928
  Receipt Date: 20070919
  Transmission Date: 20080115
  Serious: Yes (Death, Hospitalization)
  Sender: FDA-Public Use
  Company Number: HQWYE265321SEP07

PATIENT
  Sex: Male
  Weight: 113.05 kg

DRUGS (5)
  1. EFFEXOR XR [Suspect]
     Indication: MAJOR DEPRESSION
     Route: 048
  2. TRAZODONE HCL [Concomitant]
     Dosage: UNKNOWN
  3. LEXAPRO [Concomitant]
     Dosage: UNKNOWN
  4. SEROQUEL [Concomitant]
     Dosage: UNKNOWN
  5. ZANTAC [Concomitant]
     Dosage: UNKNOWN

REACTIONS (1)
  - ARTERIOSCLEROSIS [None]
